FAERS Safety Report 6696821-5 (Version None)
Quarter: 2010Q2

REPORT INFORMATION
  Report Type: 
  Country: None (occurrence: None)
  Receive Date: 20100426
  Receipt Date: 20100416
  Transmission Date: 20101027
  Serious: Yes (Hospitalization)
  Sender: FDA-Public Use
  Company Number: GXKR2010GB04340

PATIENT
  Age: 25 Year
  Sex: Male

DRUGS (3)
  1. ACETYLSALICYLIC ACID SRT [Suspect]
     Dosage: 75 MG, DAILY
  2. SILYBUM MARIANUM (NGX) [Interacting]
  3. GARLIC [Interacting]

REACTIONS (2)
  - DRUG INTERACTION [None]
  - EPISTAXIS [None]
